FAERS Safety Report 5912070-X (Version None)
Quarter: 2008Q4

REPORT INFORMATION
  Report Type: 
  Country: None (occurrence: None)
  Receive Date: 20081003
  Receipt Date: 20081003
  Transmission Date: 20090506
  Serious: Yes (Other)
  Sender: FDA-Public Use
  Company Number: None

PATIENT
  Sex: Female
  Weight: 54.4316 kg

DRUGS (2)
  1. ULTRACET [Suspect]
     Indication: BACK PAIN
     Dosage: 2 3 TIMES DAY PO
     Route: 048
     Dates: start: 20070105, end: 20081002
  2. TRAMADOL HYDROCHLORIDE AND ACETAMINOPHEN [Suspect]

REACTIONS (3)
  - DRUG INEFFECTIVE [None]
  - PAIN [None]
  - THERAPEUTIC RESPONSE UNEXPECTED WITH DRUG SUBSTITUTION [None]
